FAERS Safety Report 6016917-0 (Version None)
Quarter: 2008Q4

REPORT INFORMATION
  Report Type: 
  Country: None (occurrence: None)
  Receive Date: 20081218
  Receipt Date: 20081203
  Transmission Date: 20090506
  Serious: Yes (Life-Threatening)
  Sender: FDA-Public Use
  Company Number: 2008DE004340

PATIENT
  Age: 60 Year
  Sex: Female

DRUGS (1)
  1. ALOXI [Suspect]
     Dates: start: 20081101, end: 20081101

REACTIONS (2)
  - ANAPHYLACTIC SHOCK [None]
  - RESPIRATORY ARREST [None]
